FAERS Safety Report 19486246 (Version 1)
Quarter: 2021Q3

REPORT INFORMATION
  Report Type: Spontaneous
  Country: US (occurrence: US)
  Receive Date: 20210701
  Receipt Date: 20210701
  Transmission Date: 20211014
  Serious: No
  Sender: FDA-Public Use
  Company Number: None

PATIENT
  Age: 40 Year
  Sex: Male

DRUGS (1)
  1. BORTEZOMIB (BORTEZOMIB 3.5MG/VIL INJ) [Suspect]
     Active Substance: BORTEZOMIB
     Indication: PLASMA CELL MYELOMA
     Dates: start: 20200323, end: 20200817

REACTIONS (3)
  - Spinal cord injury thoracic [None]
  - Chronic inflammatory demyelinating polyradiculoneuropathy [None]
  - Neuropathy peripheral [None]

NARRATIVE: CASE EVENT DATE: 20200701
